FAERS Safety Report 20975482 (Version 1)
Quarter: 2022Q2

REPORT INFORMATION
  Report Type: Spontaneous
  Country: US (occurrence: US)
  Receive Date: 20220617
  Receipt Date: 20220617
  Transmission Date: 20220721
  Serious: Yes (Other)
  Sender: FDA-Public Use
  Company Number: US-OptiNose US, Inc-2022OPT000112

PATIENT
  Age: 67 Year
  Sex: Female

DRUGS (1)
  1. XHANCE [Suspect]
     Active Substance: FLUTICASONE PROPIONATE
     Indication: Chronic sinusitis
     Route: 045
     Dates: start: 20211028, end: 20220606

REACTIONS (3)
  - Herpes ophthalmic [Recovered/Resolved]
  - Vision blurred [Unknown]
  - Product use in unapproved indication [Unknown]
